FAERS Safety Report 15631930 (Version 3)
Quarter: 2018Q4

REPORT INFORMATION
  Report Type: Spontaneous
  Country: US (occurrence: US)
  Receive Date: 20181119
  Receipt Date: 20181202
  Transmission Date: 20190205
  Serious: No
  Sender: FDA-Public Use
  Company Number: US-TEVA-2018-US-974975

PATIENT
  Age: 43 Year
  Sex: Male

DRUGS (1)
  1. SILDENAFIL. [Suspect]
     Active Substance: SILDENAFIL
     Indication: ERECTILE DYSFUNCTION
     Dates: start: 201811

REACTIONS (3)
  - Drug ineffective [Unknown]
  - Product physical issue [Unknown]
  - Suspected counterfeit product [Unknown]
